FAERS Safety Report 19289399 (Version 1)
Quarter: 2021Q2

REPORT INFORMATION
  Report Type: Spontaneous
  Country: FI (occurrence: FI)
  Receive Date: 20210522
  Receipt Date: 20210522
  Transmission Date: 20210717
  Serious: Yes (Death, Hospitalization, Other)
  Sender: FDA-Public Use
  Company Number: FI-AMGEN-FINSP2021074108

PATIENT
  Sex: Female

DRUGS (5)
  1. FILGRASTIM [Suspect]
     Active Substance: FILGRASTIM
     Indication: PRODUCT USED FOR UNKNOWN INDICATION
     Dosage: UNK
     Route: 065
  2. CISPLATIN. [Concomitant]
     Active Substance: CISPLATIN
     Indication: PERICARDIAL MESOTHELIOMA MALIGNANT
     Dosage: 70 MILLIGRAM/SQ. METER
     Route: 065
  3. BEVACIZUMAB. [Suspect]
     Active Substance: BEVACIZUMAB
     Indication: EPITHELIOID MESOTHELIOMA
     Dosage: 10 MILLIGRAM/KILOGRAM
     Route: 065
  4. PEMETREXED. [Concomitant]
     Active Substance: PEMETREXED
     Indication: PERICARDIAL MESOTHELIOMA MALIGNANT
     Dosage: 500 MILLIGRAM/SQ. METER
     Route: 065
  5. PEMBROLIZUMAB. [Concomitant]
     Active Substance: PEMBROLIZUMAB
     Indication: PERICARDIAL MESOTHELIOMA MALIGNANT
     Dosage: UNK
     Route: 065

REACTIONS (3)
  - Pericardial mesothelioma malignant [Unknown]
  - Death [Fatal]
  - Off label use [Unknown]
